FAERS Safety Report 20716517 (Version 1)
Quarter: 2022Q2

REPORT INFORMATION
  Report Type: Spontaneous
  Country: FR (occurrence: FR)
  Receive Date: 20220416
  Receipt Date: 20220416
  Transmission Date: 20220721
  Serious: Yes (Life-Threatening, Other)
  Sender: FDA-Public Use
  Company Number: FR-PFIZER INC-202200511085

PATIENT
  Sex: Male

DRUGS (2)
  1. KYPROLIS [Interacting]
     Active Substance: CARFILZOMIB
     Indication: Plasma cell myeloma
     Route: 065
  2. RITONAVIR [Interacting]
     Active Substance: RITONAVIR
     Indication: COVID-19 treatment
     Dosage: UNK
     Route: 065
     Dates: start: 20220329

REACTIONS (7)
  - Multiple organ dysfunction syndrome [Unknown]
  - Hypertensive crisis [Unknown]
  - Drug interaction [Unknown]
  - Dyspnoea [Unknown]
  - C-reactive protein increased [Unknown]
  - Toxicity to various agents [Unknown]
  - Pyrexia [Unknown]

NARRATIVE: CASE EVENT DATE: 20220330
